FAERS Safety Report 9265036 (Version 1)
Quarter: 2013Q2

REPORT INFORMATION
  Report Type: Spontaneous
  Country: US (occurrence: None)
  Receive Date: 20130425
  Receipt Date: 20130425
  Transmission Date: 20140414
  Serious: Yes (Other)
  Sender: FDA-Public Use
  Company Number: 221189

PATIENT
  Sex: Female

DRUGS (1)
  1. DAIVOBET [Suspect]
     Indication: ECZEMA
     Dosage: (3 IN 1 D), TOPICAL
     Route: 061
     Dates: start: 20130403, end: 20130404

REACTIONS (8)
  - Localised infection [None]
  - Wound secretion [None]
  - Pruritus [None]
  - Erythema [None]
  - Burning sensation [None]
  - Drug dispensing error [None]
  - Abnormal behaviour [None]
  - Wrong drug administered [None]
